FAERS Safety Report 22520614 (Version 1)
Quarter: 2023Q2

REPORT INFORMATION
  Report Type: Spontaneous
  Country: US (occurrence: None)
  Receive Date: 20230530
  Receipt Date: 20230530
  Transmission Date: 20230721
  Serious: Yes (Death)
  Sender: FDA-Public Use
  Company Number: None

PATIENT
  Age: 61 Year
  Sex: Female
  Weight: 119.7 kg

DRUGS (12)
  1. PHENTERMINE [Suspect]
     Active Substance: PHENTERMINE
     Indication: Appetite disorder
     Dosage: FREQUENCY : DAILY;?
     Route: 048
  2. OZEMPIC [Concomitant]
     Active Substance: SEMAGLUTIDE
  3. NAPROXEN [Concomitant]
     Active Substance: NAPROXEN
  4. WIXELA INHUB [Concomitant]
     Active Substance: FLUTICASONE PROPIONATE\SALMETEROL XINAFOATE
  5. VITAMIN D3 [Concomitant]
     Active Substance: CHOLECALCIFEROL
  6. VENTOLIN HFA [Concomitant]
     Active Substance: ALBUTEROL SULFATE
  7. KLONOPIN [Concomitant]
     Active Substance: CLONAZEPAM
  8. LEVOTHYROXINE [Concomitant]
     Active Substance: LEVOTHYROXINE
  9. MONTELUKAST [Concomitant]
     Active Substance: MONTELUKAST SODIUM
  10. VENLAFAXINE [Concomitant]
     Active Substance: VENLAFAXINE HYDROCHLORIDE
  11. THEOPHYLLINE [Concomitant]
     Active Substance: THEOPHYLLINE
  12. ABILIFY [Concomitant]
     Active Substance: ARIPIPRAZOLE

REACTIONS (2)
  - Prescription drug used without a prescription [None]
  - Overdose [None]

NARRATIVE: CASE EVENT DATE: 20230408
